FAERS Safety Report 18011044 (Version 5)
Quarter: 2021Q2

REPORT INFORMATION
  Report Type: Report from Study
  Country: US (occurrence: US)
  Receive Date: 20200711
  Receipt Date: 20210422
  Transmission Date: 20210717
  Serious: Yes (Other)
  Sender: FDA-Public Use
  Company Number: NVSC2020US188036

PATIENT
  Age: 83 Year
  Sex: Male
  Weight: 72 kg

DRUGS (3)
  1. TABRECTA [Suspect]
     Active Substance: CAPMATINIB
     Indication: ADENOCARCINOMA METASTATIC
     Dosage: UNK ( 200 MG IN AM AND 200 MG IN PM)
     Route: 065
  2. TABRECTA [Suspect]
     Active Substance: CAPMATINIB
     Indication: NON-SMALL CELL LUNG CANCER
     Dosage: UNK
     Route: 065
  3. TABRECTA [Suspect]
     Active Substance: CAPMATINIB
     Dosage: 200 MG, BID
     Route: 048
     Dates: start: 20200604, end: 20200917

REACTIONS (6)
  - Dyspnoea [Unknown]
  - Malignant neoplasm progression [Unknown]
  - Non-small cell lung cancer [Unknown]
  - Liver function test increased [Unknown]
  - Fatigue [Unknown]
  - Oedema peripheral [Not Recovered/Not Resolved]

NARRATIVE: CASE EVENT DATE: 202001
